FAERS Safety Report 8956839 (Version 2)
Quarter: 2013Q3

REPORT INFORMATION
  Report Type: Spontaneous
  Country: KZ (occurrence: KZ)
  Receive Date: 20121211
  Receipt Date: 20130923
  Transmission Date: 20140515
  Serious: Yes (Life-Threatening, Hospitalization)
  Sender: FDA-Public Use
  Company Number: PHHY2012KZ113515

PATIENT
  Age: 45 Year
  Sex: Male

DRUGS (3)
  1. SANDIMMUN NEORAL / OL [Suspect]
     Indication: KIDNEY TRANSPLANT REJECTION
     Dosage: 250 MG, PER DAY
     Dates: start: 20120527, end: 20121123
  2. PREDNISOLONE [Suspect]
     Dosage: 5 MG, UNK
  3. CELLCEPT [Suspect]
     Indication: KIDNEY TRANSPLANT REJECTION
     Dosage: 2000 MG, UNK

REACTIONS (2)
  - Renal failure chronic [Recovering/Resolving]
  - Kidney transplant rejection [Recovering/Resolving]
